FAERS Safety Report 20182362 (Version 1)
Quarter: 2021Q4

REPORT INFORMATION
  Report Type: Spontaneous
  Country: US (occurrence: US)
  Receive Date: 20211214
  Receipt Date: 20211214
  Transmission Date: 20220303
  Serious: Yes (Hospitalization, Other)
  Sender: FDA-Public Use
  Company Number: US-MLMSERVICE-20211126-3241095-1

PATIENT
  Age: 53 Year
  Sex: Male

DRUGS (1)
  1. ACETAMINOPHEN [Suspect]
     Active Substance: ACETAMINOPHEN
     Route: 048

REACTIONS (7)
  - Unresponsive to stimuli [Unknown]
  - Shock [Unknown]
  - Oesophagitis [Unknown]
  - Necrotising oesophagitis [Unknown]
  - Haemodynamic instability [Unknown]
  - Intentional overdose [Unknown]
  - Drug level increased [Unknown]
